FAERS Safety Report 5206815-4 (Version None)
Quarter: 2006Q4

REPORT INFORMATION
  Report Type: 
  Country: None (occurrence: None)
  Receive Date: 20061031
  Receipt Date: 20060713
  Transmission Date: 20070319
  Serious: Yes (Hospitalization)
  Sender: FDA-Public Use
  Company Number: 2006-BP-08094BP

PATIENT
  Sex: Male

DRUGS (1)
  1. APTIVUS/RITONAVIR CAPSULES [Suspect]
     Indication: HIV INFECTION
     Dosage: SEE TEXT (NR, TPV/RTV 250 MG/100 MG), PO
     Route: 048

REACTIONS (1)
  - HEPATITIS [None]
